FAERS Safety Report 6460064-0 (Version None)
Quarter: 2009Q4

REPORT INFORMATION
  Report Type: 
  Country: None (occurrence: None)
  Receive Date: 20091129
  Receipt Date: 20091119
  Transmission Date: 20100525
  Serious: Yes (Hospitalization)
  Sender: FDA-Public Use
  Company Number: PHHO2009DE12989

PATIENT
  Sex: Male
  Weight: 59 kg

DRUGS (4)
  1. MYCOPHENOLATE MOFETIL [Suspect]
     Indication: LUNG TRANSPLANT
     Dosage: UNK
     Route: 048
     Dates: start: 20090426, end: 20090910
  2. NEORAL [Suspect]
     Dosage: 275 MG
     Dates: start: 20090426
  3. NEORAL [Suspect]
     Dosage: 325 MG
  4. VALGANCICLOVIR HCL [Suspect]

REACTIONS (3)
  - ANAEMIA [None]
  - CYTOMEGALOVIRUS INFECTION [None]
  - LEUKOPENIA [None]
